FAERS Safety Report 5027470-2 (Version None)
Quarter: 2006Q2

REPORT INFORMATION
  Report Type: 
  Country: None (occurrence: None)
  Receive Date: 20060501
  Receipt Date: 20060130
  Transmission Date: 20061013
  Serious: No
  Sender: FDA-Public Use
  Company Number: 200610619BWH

PATIENT
  Sex: Female

DRUGS (6)
  1. NEXAVAR [Suspect]
     Indication: UTERINE CANCER
     Dosage: 400 MG, BID, ORAL
     Route: 048
     Dates: start: 20060125
  2. COMPAZINE [Concomitant]
  3. COUMADIN [Concomitant]
  4. BETA BLOCKER [Concomitant]
  5. CHEMO DRUG [Concomitant]
  6. PAXIL [Concomitant]

REACTIONS (1)
  - STOMACH DISCOMFORT [None]
